FAERS Safety Report 12998216 (Version 1)
Quarter: 2016Q4

REPORT INFORMATION
  Report Type: Spontaneous
  Country: US (occurrence: US)
  Receive Date: 20161202
  Receipt Date: 20161202
  Transmission Date: 20170207
  Serious: Yes (Other)
  Sender: FDA-Public Use
  Company Number: None

PATIENT

DRUGS (3)
  1. HEPARIN [Concomitant]
     Active Substance: HEPARIN SODIUM
  2. HEPARIN SODIUM. [Suspect]
     Active Substance: HEPARIN SODIUM
     Indication: ANTICOAGULANT THERAPY
     Dates: start: 20160915, end: 20161201
  3. HEPARIN [Suspect]
     Active Substance: HEPARIN SODIUM
     Dates: start: 20160915, end: 20161201

REACTIONS (4)
  - Product substitution issue [None]
  - Thrombosis [None]
  - Nervous system disorder [None]
  - Procedural complication [None]
